FAERS Safety Report 8348288-9 (Version None)
Quarter: 2012Q2

REPORT INFORMATION
  Report Type: 
  Country: None (occurrence: None)
  Receive Date: 20120509
  Receipt Date: 20120412
  Transmission Date: 20120825
  Serious: Yes (Hospitalization, Disabling, Other)
  Sender: FDA-Public Use
  Company Number: JP-ASTRAZENECA-2012SE20154

PATIENT
  Age: 68 Year
  Sex: Male
  Weight: 57 kg

DRUGS (14)
  1. BETAMETHASONE [Concomitant]
     Dosage: 1 MG, NUMBER OF SEPARATE DOSAGES UNKNOWN
     Route: 054
     Dates: end: 20120308
  2. ESTAZOLAM [Concomitant]
     Route: 048
     Dates: end: 20120308
  3. PAXIL [Concomitant]
     Route: 048
     Dates: end: 20120308
  4. VALERIN [Concomitant]
     Route: 048
     Dates: end: 20120308
  5. TAMSULOSIN HCL [Concomitant]
     Route: 048
     Dates: end: 20120308
  6. LAC-B [Concomitant]
     Route: 048
     Dates: end: 20120308
  7. ABILIFY [Concomitant]
     Route: 048
     Dates: end: 20120308
  8. JANUVIA [Concomitant]
     Indication: DIABETES MELLITUS
     Route: 048
     Dates: end: 20120308
  9. ZOLPIDEM [Concomitant]
     Route: 048
     Dates: end: 20120308
  10. CRESTOR [Suspect]
     Indication: DYSLIPIDAEMIA
     Route: 048
     Dates: end: 20120308
  11. MAGNESIUM OXIDE [Concomitant]
     Route: 048
     Dates: end: 20120308
  12. BULKOSE [Concomitant]
     Route: 048
     Dates: end: 20120308
  13. FRANDOL S [Concomitant]
     Dosage: 80 MG, NUMBER OF SEPARATE DOSAGES UNKNOWN
     Route: 062
     Dates: end: 20120308
  14. TRAZODONE HYDROCHLORIDE [Concomitant]
     Route: 048
     Dates: end: 20120308

REACTIONS (4)
  - MUSCULAR WEAKNESS [None]
  - NAUSEA [None]
  - MUSCLE DISORDER [None]
  - BLOOD CREATINE PHOSPHOKINASE INCREASED [None]
